FAERS Safety Report 13421453 (Version 1)
Quarter: 2017Q2

REPORT INFORMATION
  Report Type: Spontaneous
  Country: US (occurrence: US)
  Receive Date: 20170410
  Receipt Date: 20170410
  Transmission Date: 20170830
  Serious: No
  Sender: FDA-Public Use
  Company Number: US-ASTRAZENECA-2017SE34501

PATIENT
  Sex: Female

DRUGS (3)
  1. SEROQUEL [Suspect]
     Active Substance: QUETIAPINE FUMARATE
     Route: 048
  2. SEROQUEL [Suspect]
     Active Substance: QUETIAPINE FUMARATE
     Route: 048
  3. SEROQUEL [Suspect]
     Active Substance: QUETIAPINE FUMARATE
     Route: 048

REACTIONS (6)
  - Feeling of body temperature change [Recovering/Resolving]
  - Hyperhidrosis [Recovering/Resolving]
  - Adverse event [Recovering/Resolving]
  - Panic attack [Recovering/Resolving]
  - Excessive exercise [Recovering/Resolving]
  - Drug effect faster than expected [Recovering/Resolving]

NARRATIVE: CASE EVENT DATE: 2005
